FAERS Safety Report 7760470-8 (Version None)
Quarter: 2011Q3

REPORT INFORMATION
  Report Type: 
  Country: None (occurrence: None)
  Receive Date: 20110919
  Receipt Date: 20110906
  Transmission Date: 20111222
  Serious: Yes (Other)
  Sender: FDA-Public Use
  Company Number: FR-MYLANLABS-2011S1018922

PATIENT
  Age: 88 Year
  Sex: Female

DRUGS (3)
  1. VENLAFAXINE HYDROCHLORIDE [Suspect]
     Indication: MAJOR DEPRESSION
     Dosage: 37.5 MG/D
     Route: 065
     Dates: start: 20100113
  2. VENLAFAXINE HYDROCHLORIDE [Suspect]
     Dosage: 75 MG/D
     Route: 065
     Dates: start: 20100129
  3. CLINDAMYCIN [Suspect]
     Indication: STREPTOCOCCAL INFECTION
     Route: 048
     Dates: start: 20100103

REACTIONS (2)
  - STAPHYLOCOCCAL BACTERAEMIA [None]
  - AGRANULOCYTOSIS [None]
